FAERS Safety Report 21599492 (Version 4)
Quarter: 2023Q2

REPORT INFORMATION
  Report Type: Report from Study
  Country: US (occurrence: US)
  Receive Date: 20221115
  Receipt Date: 20230428
  Transmission Date: 20230721
  Serious: Yes (Hospitalization)
  Sender: FDA-Public Use
  Company Number: US-ABBVIE-4140105

PATIENT
  Age: 67 Year
  Sex: Male
  Weight: 59.9 kg

DRUGS (26)
  1. VENETOCLAX [Suspect]
     Active Substance: VENETOCLAX
     Indication: Diffuse large B-cell lymphoma
     Dosage: EVERY DAY 1 TO 5. ON 11 OCT 2022, MOST RECENT DOSE (400 MG) PRIOR TO SAE.?START DATE OF MOST RECE...
     Route: 048
     Dates: start: 20220902
  2. METOCLOPRAMIDE [Concomitant]
     Active Substance: METOCLOPRAMIDE
     Indication: Nausea
     Dosage: TIME INTERVAL: AS NECESSARY: TABLET
     Route: 048
     Dates: start: 20220906
  3. GEMTESA [Concomitant]
     Active Substance: VIBEGRON
     Indication: Pollakiuria
     Dosage: TABLET
     Route: 048
     Dates: start: 20220906
  4. NORCO [Concomitant]
     Active Substance: ACETAMINOPHEN\HYDROCODONE BITARTRATE
     Indication: Back pain
     Dosage: 5 MG-325 MG (0.5 DF,1 IN 1 AS REQUIRED)
     Route: 048
  5. PEGFILGRASTIM [Concomitant]
     Active Substance: PEGFILGRASTIM
     Indication: Febrile neutropenia
     Dosage: AS REQUIRED
     Route: 058
     Dates: start: 20220831, end: 20220831
  6. PEGFILGRASTIM [Concomitant]
     Active Substance: PEGFILGRASTIM
     Indication: Febrile neutropenia
     Dosage: AS REQUIRED
     Route: 058
     Dates: start: 20220921, end: 20220921
  7. PEGFILGRASTIM [Concomitant]
     Active Substance: PEGFILGRASTIM
     Indication: Febrile neutropenia
     Dosage: AS REQUIRED
     Route: 058
     Dates: start: 20221012, end: 20221012
  8. PEGFILGRASTIM [Concomitant]
     Active Substance: PEGFILGRASTIM
     Indication: Febrile neutropenia
     Dosage: AS REQUIRED
     Route: 058
     Dates: start: 20221102, end: 20221102
  9. PREDNISONE [Concomitant]
     Active Substance: PREDNISONE
     Indication: Product used for unknown indication
     Dosage: 1 IN 1 AS REQUIRED
     Route: 048
     Dates: start: 20220830, end: 20220830
  10. PREDNISONE [Concomitant]
     Active Substance: PREDNISONE
     Indication: Product used for unknown indication
     Dosage: 1 IN 1 AS REQUIRED
     Route: 048
     Dates: start: 20221101, end: 20221101
  11. PREDNISONE [Concomitant]
     Active Substance: PREDNISONE
     Indication: Product used for unknown indication
     Dosage: 1 IN 1 AS REQUIRED
     Route: 048
     Dates: start: 20220920, end: 20220920
  12. PREDNISONE [Concomitant]
     Active Substance: PREDNISONE
     Indication: Product used for unknown indication
     Dosage: 1 IN 1 AS REQUIRED
     Route: 048
     Dates: start: 20221011, end: 20221011
  13. RITUXIMAB [Suspect]
     Active Substance: RITUXIMAB
     Indication: Diffuse large B-cell lymphoma
     Dosage: ON 11 OCT 2022, 20 SEP 2022 31 AUG 2022, RECEIVED MOST RECENT DOSE (375 MG) PRIOR TO ADVERSE EVENT.
     Route: 041
     Dates: start: 20220830
  14. POLATUZUMAB VEDOTIN [Suspect]
     Active Substance: POLATUZUMAB VEDOTIN
     Indication: Diffuse large B-cell lymphoma
     Dosage: ON 11 OCT 2022, 20 SEP 2022, 31 AUG 2022, MOST RECENT DOSE PRIOR TO ADVERSE EVENT.
     Route: 042
     Dates: start: 20220830
  15. PREDNISONE [Suspect]
     Active Substance: PREDNISONE
     Indication: Diffuse large B-cell lymphoma
     Dosage: EVERY DAY 1 TO 5. ON 15 OCT 2022, 04 SEP 2022, RECEIVED MOST RECENT DOSE OF 100 MG PRIOR TO AE AN...
     Route: 048
     Dates: start: 20220830, end: 20220830
  16. PREDNISONE [Suspect]
     Active Substance: PREDNISONE
     Indication: Diffuse large B-cell lymphoma
     Dosage: 1 IN 1 AS REQUIRED
     Route: 048
     Dates: start: 20220920, end: 20220920
  17. PREDNISONE [Suspect]
     Active Substance: PREDNISONE
     Indication: Diffuse large B-cell lymphoma
     Dosage: 1 IN 1 AS REQUIRED
     Route: 048
     Dates: start: 20221011, end: 20221011
  18. CYCLOPHOSPHAMIDE [Suspect]
     Active Substance: CYCLOPHOSPHAMIDE
     Indication: Diffuse large B-cell lymphoma
     Dosage: ON 11 OCT 2022, 20 SEP 2022 ,31 AUG 2022, MOST RECENT DOSE (1200 MG) OF PRIOR TO ADVERSE EVENT.
     Route: 042
     Dates: start: 20220830
  19. DOXORUBICIN [Suspect]
     Active Substance: DOXORUBICIN
     Indication: Diffuse large B-cell lymphoma
     Dosage: ON 11 OCT 2022, 20 SEP 2022, 31 AUG 2022, MOST RECENT DOSE PRIOR TO ADVERSE EVENT.
     Route: 042
     Dates: start: 20220830
  20. BENZONATATE [Concomitant]
     Active Substance: BENZONATATE
     Indication: Cough
     Dosage: TIME INTERVAL: 0.33333333 DAYS
     Route: 048
     Dates: start: 20220928, end: 20221004
  21. BENZONATATE [Concomitant]
     Active Substance: BENZONATATE
     Indication: Cough
     Dosage: TIME INTERVAL: 0.33333333 DAYS
     Route: 048
     Dates: start: 20221020, end: 20221022
  22. ENOXAPARIN [Concomitant]
     Active Substance: ENOXAPARIN
     Indication: Product used for unknown indication
     Route: 058
     Dates: start: 20220928, end: 20221004
  23. ACETAMINOPHEN\HYDROCODONE [Concomitant]
     Active Substance: ACETAMINOPHEN\HYDROCODONE
     Indication: Pain
     Dosage: 7.5 MG-325MG 1DF, 1 IN 1 AS REQUIRED
     Route: 048
     Dates: start: 20221020, end: 20221022
  24. VANCOMYCIN [Concomitant]
     Active Substance: VANCOMYCIN
     Indication: Clostridium difficile infection
     Route: 048
     Dates: start: 20221020, end: 20221022
  25. CODEINE PHOSPHATE\GUAIFENESIN [Concomitant]
     Active Substance: CODEINE PHOSPHATE\GUAIFENESIN
     Indication: Cough
     Route: 048
     Dates: start: 20221020, end: 20221022
  26. ACETAMINOPHEN [Concomitant]
     Active Substance: ACETAMINOPHEN
     Indication: Product used for unknown indication
     Dosage: 1 IN 1 AS REQUIRED
     Route: 048
     Dates: start: 20221011, end: 20221011

REACTIONS (5)
  - Rhinovirus infection [Recovered/Resolved]
  - Febrile neutropenia [Recovered/Resolved]
  - Diverticulitis [Recovered/Resolved]
  - Sepsis [Recovered/Resolved]
  - Anaemia [Recovered/Resolved]

NARRATIVE: CASE EVENT DATE: 20220831
